FAERS Safety Report 15955946 (Version 1)
Quarter: 2019Q1

REPORT INFORMATION
  Report Type: Spontaneous
  Country: US (occurrence: US)
  Receive Date: 20190212
  Receipt Date: 20190212
  Transmission Date: 20190417
  Serious: Yes (Hospitalization)
  Sender: FDA-Public Use
  Company Number: None

PATIENT
  Age: 81 Year
  Sex: Male
  Weight: 68 kg

DRUGS (3)
  1. ASPIRIN 81MG [Concomitant]
     Active Substance: ASPIRIN
  2. APIXABAN [Suspect]
     Active Substance: APIXABAN
     Route: 048
     Dates: start: 20180802, end: 20180804
  3. CLOPIDOGREL [Concomitant]
     Active Substance: CLOPIDOGREL BISULFATE

REACTIONS (6)
  - Embolism venous [None]
  - Subarachnoid haemorrhage [None]
  - Deep vein thrombosis [None]
  - Phlebitis [None]
  - Pseudomonal bacteraemia [None]
  - Subdural haemorrhage [None]

NARRATIVE: CASE EVENT DATE: 20180804
